FAERS Safety Report 18962070 (Version 1)
Quarter: 2021Q1

REPORT INFORMATION
  Report Type: Spontaneous
  Country: US (occurrence: US)
  Receive Date: 20210302
  Receipt Date: 20210302
  Transmission Date: 20210420
  Serious: Yes (Hospitalization)
  Sender: FDA-Public Use
  Company Number: None

PATIENT
  Age: 74 Year
  Sex: Female

DRUGS (2)
  1. CYCLOPHOSPHAMIDE (CYCLOPHOSPHAMIDE 50MG CAP) [Suspect]
     Active Substance: CYCLOPHOSPHAMIDE
     Indication: PLASMA CELL MYELOMA
     Route: 048
     Dates: start: 20210210, end: 20210210
  2. DEXAMETHASONE (DEXAMETHASONE 2MG TAB) [Suspect]
     Active Substance: DEXAMETHASONE
     Indication: PLASMA CELL MYELOMA
     Route: 048
     Dates: start: 20210210, end: 20210210

REACTIONS (8)
  - Pancytopenia [None]
  - Upper gastrointestinal haemorrhage [None]
  - Spinal compression fracture [None]
  - Anaemia [None]
  - Haematemesis [None]
  - Thrombocytopenia [None]
  - Epigastric discomfort [None]
  - Neutropenia [None]

NARRATIVE: CASE EVENT DATE: 20210219
